FAERS Safety Report 21649807 (Version 2)
Quarter: 2024Q3

REPORT INFORMATION
  Report Type: Report from Study
  Country: IT (occurrence: IT)
  Receive Date: 20221128
  Receipt Date: 20240712
  Transmission Date: 20241016
  Serious: Yes (Hospitalization)
  Sender: TEVA
  Company Number: None

PATIENT
  Age: 12 Year
  Sex: Female
  Weight: 42 kg

DRUGS (5)
  1. VINCRISTINE [Suspect]
     Active Substance: VINCRISTINE
     Indication: Ewing^s sarcoma
     Dosage: DOSAGE TEXT:  2 MG ON 8/31, 9/8/22 , VINCRISTINA TEVA ITALIA
     Route: 042
     Dates: start: 20220831, end: 20220908
  2. CYCLOPHOSPHAMIDE [Suspect]
     Active Substance: CYCLOPHOSPHAMIDE
     Indication: Ewing^s sarcoma
     Dosage: ENDOXAN BAXTER
     Route: 042
     Dates: start: 20220831, end: 20220831
  3. MESNA [Concomitant]
     Active Substance: MESNA
     Indication: Product used for unknown indication
     Dosage: 520 MG IV OVER 30 MINUTES. + 1560 MG IV IN 22 HOURS ON 08/31/22
     Route: 042
     Dates: start: 20220831, end: 20220831
  4. DECAPEPTYL [Concomitant]
     Indication: Product used for unknown indication
     Dosage: 1 VIAL OF 0.1 MG
     Route: 065
     Dates: start: 20220915, end: 20220915
  5. DOXORUBICIN [Suspect]
     Active Substance: DOXORUBICIN
     Indication: Ewing^s sarcoma
     Dosage: DOXORUBICINA TEVA
     Route: 065
     Dates: start: 20220831, end: 20220831

REACTIONS (5)
  - Febrile neutropenia [Recovered/Resolved]
  - Vomiting [Recovered/Resolved]
  - Anaemia [Recovered/Resolved]
  - Constipation [Recovered/Resolved]
  - Stomatitis [Recovered/Resolved]

NARRATIVE: CASE EVENT DATE: 20220901
